FAERS Safety Report 6523503-2 (Version None)
Quarter: 2009Q4

REPORT INFORMATION
  Report Type: 
  Country: None (occurrence: None)
  Receive Date: 20091231
  Receipt Date: 20091221
  Transmission Date: 20100525
  Serious: Yes (Hospitalization, Other)
  Sender: FDA-Public Use
  Company Number: PHHY2009SI57028

PATIENT
  Age: 30 Year
  Sex: Female

DRUGS (2)
  1. LEPONEX [Suspect]
     Dosage: 500 MG, DAILY
  2. ASENTRA [Concomitant]

REACTIONS (3)
  - FALL [None]
  - LOWER LIMB FRACTURE [None]
  - OSTEOPOROSIS [None]
